FAERS Safety Report 4613648-6 (Version None)
Quarter: 2005Q1

REPORT INFORMATION
  Report Type: 
  Country: None (occurrence: None)
  Receive Date: 20050315
  Receipt Date: 20040223
  Transmission Date: 20050727
  Serious: No
  Sender: FDA-Public Use
  Company Number: 7465

PATIENT
  Age: 50 Year
  Sex: Female

DRUGS (4)
  1. PAMIDRONATE DISODIUM [Suspect]
     Indication: NON-HODGKIN'S LYMPHOMA
     Dosage: 60 MG
  2. CYCLOPHOSPHAMIDE [Concomitant]
  3. VINCRISTINE [Concomitant]
  4. DEXAMETHASONE [Concomitant]

REACTIONS (4)
  - HYPOCALCAEMIA [None]
  - HYPOMAGNESAEMIA [None]
  - TETANY [None]
  - VITAMIN D DECREASED [None]
